FAERS Safety Report 20967932 (Version 3)
Quarter: 2022Q3

REPORT INFORMATION
  Report Type: Report from Study
  Country: AU (occurrence: AU)
  Receive Date: 20220616
  Receipt Date: 20220801
  Transmission Date: 20221027
  Serious: Yes (Other)
  Sender: FDA-Public Use
  Company Number: AU-NOVARTISPH-NVSC2022AU126425

PATIENT
  Age: 43 Year
  Sex: Female

DRUGS (1)
  1. KESIMPTA [Suspect]
     Active Substance: OFATUMUMAB
     Indication: Relapsing-remitting multiple sclerosis
     Dosage: 20 MG, QMO
     Route: 058
     Dates: start: 20220526

REACTIONS (13)
  - Eye haemorrhage [Recovering/Resolving]
  - Influenza like illness [Unknown]
  - Pyrexia [Unknown]
  - Chills [Recovered/Resolved]
  - Cough [Recovering/Resolving]
  - Respiratory tract congestion [Unknown]
  - Headache [Recovered/Resolved]
  - Productive cough [Unknown]
  - Lower respiratory tract infection [Unknown]
  - Fatigue [Unknown]
  - Malaise [Unknown]
  - Nausea [Unknown]
  - Balance disorder [Unknown]

NARRATIVE: CASE EVENT DATE: 20220501
